FAERS Safety Report 24654863 (Version 1)
Quarter: 2024Q4

REPORT INFORMATION
  Report Type: Spontaneous
  Country: FR (occurrence: FR)
  Receive Date: 20241122
  Receipt Date: 20241122
  Transmission Date: 20250115
  Serious: Yes (Hospitalization, Other)
  Sender: MERCK
  Company Number: None

PATIENT
  Age: 69 Year
  Sex: Male
  Weight: 69 kg

DRUGS (4)
  1. EMEND [Suspect]
     Active Substance: APREPITANT
     Indication: Chemotherapy side effect prophylaxis
     Dosage: 125 MG ON D1 80 MG ON D2 AND D3 21-DAY CYCLES
     Dates: start: 20231219, end: 20240307
  2. PEMETREXED [Suspect]
     Active Substance: PEMETREXED
     Indication: Lung adenocarcinoma stage IV
     Dosage: 500 MILLIGRAM/SQ. METER (MG/M2), CYCLICAL; 1 TREATMENT EVERY 21 DAYS
     Dates: start: 20231219, end: 20240206
  3. PEMETREXED [Suspect]
     Active Substance: PEMETREXED
     Dosage: 400 MILLIGRAM/SQ. METER (MG/M2), CYCLICAL; 1 TREATMENT EVERY 21 DAYS DOSE REDUCTION THEORETICAL DOSE
     Dates: start: 20240305, end: 20240305
  4. CARBOPLATIN [Suspect]
     Active Substance: CARBOPLATIN
     Indication: Lung adenocarcinoma stage IV
     Dosage: 399 MILLIGRAM, CYCLICAL,; ^5 AUC^
     Dates: start: 20231219, end: 20240305

REACTIONS (2)
  - Stevens-Johnson syndrome [Recovered/Resolved]
  - Pancytopenia [Recovered/Resolved]

NARRATIVE: CASE EVENT DATE: 20240221
